FAERS Safety Report 20059998 (Version 1)
Quarter: 2021Q4

REPORT INFORMATION
  Report Type: Spontaneous
  Country: US (occurrence: US)
  Receive Date: 20211111
  Receipt Date: 20211111
  Transmission Date: 20220304
  Serious: No
  Sender: FDA-Public Use
  Company Number: US-G1-000330

PATIENT

DRUGS (2)
  1. COSELA [Suspect]
     Active Substance: TRILACICLIB DIHYDROCHLORIDE
     Indication: Product used for unknown indication
  2. 4642383 (GLOBALC3Sep20): lurbinectedin [Concomitant]
     Indication: Small cell lung cancer

REACTIONS (1)
  - Off label use [Unknown]
